FAERS Safety Report 5204854-0 (Version None)
Quarter: 2007Q1

REPORT INFORMATION
  Report Type: 
  Country: None (occurrence: None)
  Receive Date: 20070110
  Receipt Date: 20060811
  Transmission Date: 20070707
  Serious: No
  Sender: FDA-Public Use
  Company Number: US-BRISTOL-MYERS SQUIBB COMPANY-13472436

PATIENT
  Age: 43 Year
  Sex: Female
  Weight: 91 kg

DRUGS (5)
  1. ABILIFY [Suspect]
     Indication: PSYCHOTIC DISORDER
     Route: 048
     Dates: start: 20060807
  2. LORCET-HD [Concomitant]
  3. LOPRESSOR [Concomitant]
  4. ZANTAC [Concomitant]
  5. AMBIEN [Concomitant]

REACTIONS (2)
  - INSOMNIA [None]
  - NAUSEA [None]
